FAERS Safety Report 9054315 (Version 1)
Quarter: 2013Q1

REPORT INFORMATION
  Report Type: Spontaneous
  Country: KR (occurrence: KR)
  Receive Date: 20130208
  Receipt Date: 20130208
  Transmission Date: 20140127
  Serious: Yes (Death, Hospitalization)
  Sender: FDA-Public Use
  Company Number: KR-PFIZER INC-2012128540

PATIENT
  Age: 60 Year
  Sex: Female
  Weight: 51.7 kg

DRUGS (6)
  1. AROMASIN [Suspect]
     Indication: BREAST CANCER
     Dosage: 25 MG, 1X/DAY
     Route: 048
     Dates: start: 20110530, end: 20110914
  2. ZOMETA [Concomitant]
     Indication: METASTASES TO BONE
     Dosage: 4 MG, DAILY
  3. ADCAL [Concomitant]
     Indication: MINERAL SUPPLEMENTATION
     Dosage: 2 DF, DAILY DOSE 2 TABLETS
     Dates: start: 20110530, end: 20110914
  4. MYPOL [Concomitant]
     Indication: PAIN MANAGEMENT
     Dosage: 1 DF, DAILY DOSE 1 TABLET
     Dates: start: 20110530, end: 20110914
  5. TIROPA [Concomitant]
     Indication: PAIN MANAGEMENT
     Dosage: 300 MG, UNK
     Dates: start: 20110530, end: 20110914
  6. STILLEN [Concomitant]
     Dosage: 120 MG, UNK
     Dates: start: 20110530, end: 20110914

REACTIONS (1)
  - Pneumonia [Fatal]
